FAERS Safety Report 17439253 (Version 1)
Quarter: 2020Q1

REPORT INFORMATION
  Report Type: Spontaneous
  Country: US (occurrence: US)
  Receive Date: 20200219
  Receipt Date: 20200219
  Transmission Date: 20200409
  Serious: Yes (Life-Threatening, Hospitalization, Disabling, Other)
  Sender: FDA-Public Use
  Company Number: None

PATIENT
  Age: 44 Year
  Sex: Female
  Weight: 111 kg

DRUGS (2)
  1. TALTZ [Suspect]
     Active Substance: IXEKIZUMAB
     Indication: PSORIASIS
     Dosage: ?          OTHER FREQUENCY:PER MONTH;?
     Route: 058
     Dates: start: 20171001, end: 20191020
  2. METFORMIN [Concomitant]
     Active Substance: METFORMIN HYDROCHLORIDE

REACTIONS (7)
  - Visual field defect [None]
  - Hypertension [None]
  - Posterior reversible encephalopathy syndrome [None]
  - Brain oedema [None]
  - Cerebral haemorrhage [None]
  - Aphasia [None]
  - Seizure [None]

NARRATIVE: CASE EVENT DATE: 20191011
